FAERS Safety Report 5578125-7 (Version None)
Quarter: 2007Q4

REPORT INFORMATION
  Report Type: 
  Country: None (occurrence: None)
  Receive Date: 20071227
  Receipt Date: 20071218
  Transmission Date: 20080405
  Serious: Yes (Life-Threatening, Hospitalization)
  Sender: FDA-Public Use
  Company Number: 2007000892

PATIENT
  Age: 40 Year
  Sex: Female

DRUGS (13)
  1. ERLOTINIB (TABLET) [Suspect]
     Indication: NON-SMALL CELL LUNG CANCER
     Dosage: (150 MG, QD), ORAL
     Route: 048
     Dates: start: 20050624
  2. INDOMETHACIN [Suspect]
     Indication: NON-SMALL CELL LUNG CANCER
     Dosage: 150 MCG (150 MCG)
     Dates: start: 20070119
  3. CLARITHROMYCIN [Suspect]
     Dosage: 1000MG (1000 MG)
     Dates: start: 20070429, end: 20070430
  4. AUGMENTIN '125' [Concomitant]
  5. DOPAMINE HCL [Concomitant]
  6. ACTRAPID [Concomitant]
  7. MIDAZOLAM HCL [Concomitant]
  8. HALOPERIDOL [Concomitant]
  9. MINRIN (DESMOPRESSIN) [Concomitant]
  10. DIPRIVAN [Concomitant]
  11. FENTANYL [Concomitant]
  12. ESMERON (ROCURONIUM BROMIDE) [Concomitant]
  13. SUXAMETHONIUM (SUXAMETHONIUM) [Concomitant]

REACTIONS (4)
  - ANAEMIA [None]
  - ANXIETY [None]
  - HAEMOPTYSIS [None]
  - RESPIRATORY ARREST [None]
